FAERS Safety Report 15555023 (Version 1)
Quarter: 2018Q4

REPORT INFORMATION
  Report Type: Spontaneous
  Country: FR (occurrence: FR)
  Receive Date: 20181026
  Receipt Date: 20181026
  Transmission Date: 20190205
  Serious: Yes (Hospitalization)
  Sender: FDA-Public Use
  Company Number: FR-BAYER-2018-195377

PATIENT
  Age: 81 Year
  Sex: Male

DRUGS (1)
  1. NEXAVAR [Suspect]
     Active Substance: SORAFENIB
     Dosage: 2 DF, BID
     Dates: start: 2018, end: 2018

REACTIONS (3)
  - Skin plaque [None]
  - Rash [Recovered/Resolved]
  - General physical health deterioration [None]

NARRATIVE: CASE EVENT DATE: 20181018
